FAERS Safety Report 11722409 (Version 1)
Quarter: 2015Q4

REPORT INFORMATION
  Report Type: Spontaneous
  Country: US (occurrence: None)
  Receive Date: 20151110
  Receipt Date: 20151110
  Transmission Date: 20160304
  Serious: Yes (Other)
  Sender: FDA-Public Use
  Company Number: None

PATIENT
  Age: 69 Year
  Sex: Female
  Weight: 76.2 kg

DRUGS (9)
  1. NIGROGLYCER [Concomitant]
  2. PRAVASTATIN [Suspect]
     Active Substance: PRAVASTATIN\PRAVASTATIN SODIUM
     Indication: CORONARY ARTERY DISEASE
     Dosage: 10 MG 1XDAY ONCE DAILY
     Dates: start: 20130204, end: 20151102
  3. PRAVASTATIN [Concomitant]
     Active Substance: PRAVASTATIN\PRAVASTATIN SODIUM
  4. BABY ASPIRIN [Concomitant]
     Active Substance: ASPIRIN
  5. ATENOLOL. [Concomitant]
     Active Substance: ATENOLOL
  6. AMLODIPINE [Concomitant]
     Active Substance: AMLODIPINE BESYLATE
  7. ALPRAZOLAM. [Concomitant]
     Active Substance: ALPRAZOLAM
  8. FEXOFENADINE [Concomitant]
     Active Substance: FEXOFENADINE\FEXOFENADINE HYDROCHLORIDE
  9. ASPIRIN. [Concomitant]
     Active Substance: ASPIRIN

REACTIONS (6)
  - Weight increased [None]
  - Quality of life decreased [None]
  - Coronary artery disease [None]
  - Chest pain [None]
  - Amnesia [None]
  - Cognitive disorder [None]

NARRATIVE: CASE EVENT DATE: 20151102
